FAERS Safety Report 6929734-1 (Version None)
Quarter: 2010Q3

REPORT INFORMATION
  Report Type: 
  Country: None (occurrence: None)
  Receive Date: 20100818
  Receipt Date: 20100809
  Transmission Date: 20110219
  Serious: Yes (Other)
  Sender: FDA-Public Use
  Company Number: US-ABBOTT-10P-163-0661838-00

PATIENT
  Age: 20 Year
  Sex: Female

DRUGS (3)
  1. NORVIR [Suspect]
     Indication: HIV INFECTION
     Dosage: PATIENT WAS TAKING MEDICATION AT TIME OF CONCEPTION
     Route: 048
     Dates: start: 20090817
  2. ATAZANAVIR SULFATE [Suspect]
     Indication: HIV INFECTION
     Dosage: PATIENT WAS TAKING MEDICATION AT TIME OF CONCEPTION
     Route: 048
     Dates: start: 20090817
  3. TENOFOVIR DISOPROXIL FUMARATE [Suspect]
     Indication: HIV INFECTION
     Dosage: PATIENT WAS TAKING MEDICATION AT TIME OF CONCEPTION
     Route: 048
     Dates: start: 20090817

REACTIONS (2)
  - ABORTION SPONTANEOUS [None]
  - DRUG EXPOSURE DURING PREGNANCY [None]
